FAERS Safety Report 8525207-3 (Version None)
Quarter: 2012Q3

REPORT INFORMATION
  Report Type: 
  Country: None (occurrence: None)
  Receive Date: 20120720
  Receipt Date: 20120712
  Transmission Date: 20120928
  Serious: Yes (Other)
  Sender: FDA-Public Use
  Company Number: PHEH2012US013488

PATIENT
  Sex: Male
  Weight: 86.621 kg

DRUGS (3)
  1. FLOMAX [Concomitant]
     Dosage: 0.4 MG, QD
     Dates: start: 20070402
  2. GILENYA [Suspect]
     Indication: MULTIPLE SCLEROSIS
     Dosage: 0.5 MG, QD
     Route: 048
     Dates: start: 20110404, end: 20120625
  3. FINASTERIDE [Concomitant]
     Dosage: 5 MG, QD
     Route: 048
     Dates: start: 20120516

REACTIONS (6)
  - DILATATION VENTRICULAR [None]
  - LEFT VENTRICULAR DYSFUNCTION [None]
  - MYOCARDIAL INFARCTION [None]
  - BUNDLE BRANCH BLOCK LEFT [None]
  - EJECTION FRACTION DECREASED [None]
  - VENTRICULAR EXTRASYSTOLES [None]
